FAERS Safety Report 9218562 (Version 1)
Quarter: 2013Q1

REPORT INFORMATION
  Report Type: Spontaneous
  Country: US (occurrence: None)
  Receive Date: 20120827
  Receipt Date: 20120827
  Transmission Date: 20140127
  Serious: Yes (Other)
  Sender: FDA-Public Use
  Company Number: 350844

PATIENT
  Age: 47 Year
  Sex: Female
  Weight: 122.4 kg

DRUGS (3)
  1. VICTOZA [Suspect]
     Indication: TYPE 2 DIABETES MELLITUS
     Route: 058
     Dates: start: 20120224, end: 20120503
  2. TRADJENTA (LINAGLIPTIN) [Concomitant]
  3. GLIMEPIRIDE (GLIMEPIRIDE) [Concomitant]

REACTIONS (1)
  - Pancreatitis acute [None]
